FAERS Safety Report 23081177 (Version 2)
Quarter: 2023Q4

REPORT INFORMATION
  Report Type: Spontaneous
  Country: JP (occurrence: JP)
  Receive Date: 20231018
  Receipt Date: 20231020
  Transmission Date: 20240109
  Serious: Yes (Hospitalization, Other)
  Sender: FDA-Public Use
  Company Number: JP-MSD-M2022-39150

PATIENT
  Sex: Female

DRUGS (3)
  1. KEYTRUDA [Suspect]
     Active Substance: PEMBROLIZUMAB
     Indication: Uterine cancer
     Dosage: 200 MILLIGRAM, Q3W
     Route: 041
  2. LENVATINIB MESYLATE [Suspect]
     Active Substance: LENVATINIB MESYLATE
     Indication: Uterine cancer
     Dosage: UNK
     Route: 048
  3. LENVATINIB MESYLATE [Suspect]
     Active Substance: LENVATINIB MESYLATE
     Dosage: 4 MILLIGRAM
     Route: 048

REACTIONS (30)
  - Thrombocytopenia [Recovered/Resolved]
  - Cholecystitis [Unknown]
  - Pneumonitis [Unknown]
  - Neutropenia [Recovering/Resolving]
  - Hypothyroidism [Unknown]
  - Renal impairment [Unknown]
  - Hyperthyroidism [Unknown]
  - Aspartate aminotransferase increased [Unknown]
  - Glucose tolerance impaired [Unknown]
  - Drug hypersensitivity [Unknown]
  - Drug hypersensitivity [Unknown]
  - Venous thrombosis limb [Unknown]
  - Faeces soft [Unknown]
  - Hypertension [Recovering/Resolving]
  - Myalgia [Unknown]
  - Malaise [Recovering/Resolving]
  - Nausea [Unknown]
  - Rash [Recovering/Resolving]
  - Vomiting [Unknown]
  - Proteinuria [Unknown]
  - Decreased appetite [Recovering/Resolving]
  - Arthralgia [Unknown]
  - Diarrhoea [Unknown]
  - Palmar-plantar erythrodysaesthesia syndrome [Recovering/Resolving]
  - Weight decreased [Unknown]
  - Dysphonia [Recovering/Resolving]
  - Pyrexia [Recovering/Resolving]
  - Constipation [Unknown]
  - Cough [Unknown]
  - Headache [Unknown]
